FAERS Safety Report 13259539 (Version 1)
Quarter: 2017Q1

REPORT INFORMATION
  Report Type: Spontaneous
  Country: DE (occurrence: DE)
  Receive Date: 20170222
  Receipt Date: 20170222
  Transmission Date: 20170428
  Serious: Yes (Congenital Anomaly)
  Sender: FDA-Public Use
  Company Number: DE-AUROBINDO-AUR-APL-2017-29733

PATIENT
  Age: 1 Day
  Sex: Male
  Weight: 3.52 kg

DRUGS (2)
  1. MATERNA                            /07484301/ [Concomitant]
     Indication: PROPHYLAXIS OF NEURAL TUBE DEFECT
     Dosage: 0.4 MG, DAILY
     Route: 064
     Dates: start: 20151119, end: 20160828
  2. LEVETIRACETAM. [Suspect]
     Active Substance: LEVETIRACETAM
     Indication: EPILEPSY
     Dosage: 2000 MG/DAY IN GW 13: DOSAGE INCREASED TO 2X1000MG BECAUSE OF A SEIZURE
     Route: 064
     Dates: start: 20151119, end: 20160828

REACTIONS (3)
  - Syndactyly [Not Recovered/Not Resolved]
  - Polydactyly [Not Recovered/Not Resolved]
  - Foetal exposure during pregnancy [Not Recovered/Not Resolved]

NARRATIVE: CASE EVENT DATE: 20160828
